FAERS Safety Report 14488532 (Version 2)
Quarter: 2018Q3

REPORT INFORMATION
  Report Type: Spontaneous
  Country: JP (occurrence: JP)
  Receive Date: 20180205
  Receipt Date: 20180724
  Transmission Date: 20181010
  Serious: Yes (Other)
  Sender: FDA-Public Use
  Company Number: JP-PFIZER INC-2018043746

PATIENT

DRUGS (1)
  1. LEUCOVORIN. [Suspect]
     Active Substance: LEUCOVORIN
     Dosage: UNK
     Route: 048

REACTIONS (1)
  - Platelet count increased [Recovered/Resolved]
